FAERS Safety Report 7656899-9 (Version None)
Quarter: 2011Q3

REPORT INFORMATION
  Report Type: 
  Country: None (occurrence: None)
  Receive Date: 20110804
  Receipt Date: 20110728
  Transmission Date: 20111222
  Serious: Yes (Other)
  Sender: FDA-Public Use
  Company Number: BR-SANOFI-AVENTIS-2011SA048644

PATIENT
  Sex: Female
  Weight: 62 kg

DRUGS (10)
  1. METFORMIN HCL [Concomitant]
     Indication: TYPE 2 DIABETES MELLITUS
     Route: 048
  2. ASPIRIN [Concomitant]
     Indication: BLOOD PRESSURE
     Route: 048
  3. HYGROTON [Concomitant]
     Indication: BLOOD PRESSURE
     Route: 048
  4. LANTUS [Suspect]
     Indication: TYPE 2 DIABETES MELLITUS
     Route: 058
  5. NOVORAPID [Concomitant]
     Indication: TYPE 2 DIABETES MELLITUS
  6. AMLODIPINE [Concomitant]
     Indication: BLOOD PRESSURE
     Route: 048
  7. SYNTHROID [Concomitant]
     Indication: THYROID DISORDER
     Route: 048
  8. AUTOPEN 24 [Concomitant]
     Indication: DEVICE THERAPY
  9. LETROZOLE [Concomitant]
     Indication: BREAST CANCER
     Route: 048
  10. ORAL ANTIDIABETICS [Concomitant]
     Indication: TYPE 2 DIABETES MELLITUS
     Route: 048

REACTIONS (14)
  - SINUSITIS [None]
  - HYPOGLYCAEMIA [None]
  - HYPERGLYCAEMIA [None]
  - FEELING ABNORMAL [None]
  - BREAST SWELLING [None]
  - DIZZINESS [None]
  - BREAST CANCER [None]
  - SOMNOLENCE [None]
  - NAUSEA [None]
  - HYPOAESTHESIA ORAL [None]
  - BREAST DISCOLOURATION [None]
  - MUSCLE SPASMS [None]
  - SKIN LESION [None]
  - HYPOAESTHESIA [None]
